FAERS Safety Report 12116197 (Version 1)
Quarter: 2016Q1

REPORT INFORMATION
  Report Type: Spontaneous
  Country: US (occurrence: US)
  Receive Date: 20160225
  Receipt Date: 20160225
  Transmission Date: 20160526
  Serious: No
  Sender: FDA-Public Use
  Company Number: US-MYLANLABS-2015M1005283

PATIENT
  Age: 65 Year
  Sex: Female
  Weight: 97.51 kg

DRUGS (2)
  1. METOPROLOL TARTRATE TABLETS USP [Suspect]
     Active Substance: METOPROLOL TARTRATE
     Indication: VENTRICULAR EXTRASYSTOLES
     Dosage: 25 MG, QD
     Route: 048
     Dates: start: 20141127, end: 20141220
  2. METOPROLOL TARTRATE TABLETS USP [Suspect]
     Active Substance: METOPROLOL TARTRATE
     Indication: OFF LABEL USE
     Dosage: 25 MG, ONCE
     Route: 048
     Dates: start: 20150216, end: 20150216

REACTIONS (3)
  - Headache [Recovered/Resolved with Sequelae]
  - Dyspepsia [Recovered/Resolved with Sequelae]
  - Hypertonic bladder [Recovered/Resolved with Sequelae]

NARRATIVE: CASE EVENT DATE: 201412
